FAERS Safety Report 4497132-9 (Version None)
Quarter: 2004Q3

REPORT INFORMATION
  Report Type: 
  Country: None (occurrence: None)
  Receive Date: 20040927
  Receipt Date: 20040526
  Transmission Date: 20050211
  Serious: No
  Sender: FDA-Public Use
  Company Number: USA040568640

PATIENT
  Age: 42 Year
  Sex: Male
  Weight: 100 kg

DRUGS (1)
  1. STRATTERA [Suspect]
     Indication: ATTENTION DEFICIT/HYPERACTIVITY DISORDER
     Dosage: 100 MG
     Dates: start: 20040101, end: 20040411

REACTIONS (4)
  - BLOOD PRESSURE INCREASED [None]
  - FATIGUE [None]
  - FEELING JITTERY [None]
  - TACHYCARDIA [None]
